FAERS Safety Report 9354576 (Version 1)
Quarter: 2013Q2

REPORT INFORMATION
  Report Type: Report from Study
  Country: US (occurrence: US)
  Receive Date: 20130618
  Receipt Date: 20130618
  Transmission Date: 20140414
  Serious: Yes (Other)
  Sender: FDA-Public Use
  Company Number: US-US-EMD SERONO, INC.-7217500

PATIENT
  Age: 58 Year
  Sex: Female

DRUGS (2)
  1. REBIF [Suspect]
     Indication: MULTIPLE SCLEROSIS
     Route: 058
     Dates: start: 2002
  2. REBIF [Suspect]
     Route: 058
     Dates: start: 20121018, end: 20130527

REACTIONS (6)
  - Platelet disorder [Not Recovered/Not Resolved]
  - Tooth infection [Recovered/Resolved]
  - Hypopnoea [Unknown]
  - Bladder disorder [Unknown]
  - Neck injury [Unknown]
  - Influenza like illness [Unknown]
